FAERS Safety Report 14742933 (Version 5)
Quarter: 2018Q3

REPORT INFORMATION
  Report Type: Report from Study
  Country: US (occurrence: US)
  Receive Date: 20180410
  Receipt Date: 20180914
  Transmission Date: 20181010
  Serious: Yes (Hospitalization)
  Sender: FDA-Public Use
  Company Number: US-ACTELION-A-NJ2018-170154

PATIENT
  Age: 7 Year
  Sex: Male

DRUGS (13)
  1. ASPIRIN. [Concomitant]
     Active Substance: ASPIRIN
  2. IBUPROFEN. [Concomitant]
     Active Substance: IBUPROFEN
  3. DIGOXIN. [Concomitant]
     Active Substance: DIGOXIN
  4. ADCIRCA [Concomitant]
     Active Substance: TADALAFIL
  5. EPANED [Concomitant]
     Active Substance: ENALAPRIL MALEATE
  6. FLOVENT [Concomitant]
     Active Substance: FLUTICASONE PROPIONATE
  7. DIURIL [Concomitant]
     Active Substance: CHLOROTHIAZIDE
  8. ALBUTEROL. [Concomitant]
     Active Substance: ALBUTEROL
  9. TRACLEER [Suspect]
     Active Substance: BOSENTAN
     Dosage: 32 MG, BID
     Route: 048
  10. TADALAFIL [Concomitant]
     Active Substance: TADALAFIL
  11. PROAIR HFA [Concomitant]
     Active Substance: ALBUTEROL SULFATE
  12. SILDENAFIL. [Concomitant]
     Active Substance: SILDENAFIL
  13. TRACLEER [Suspect]
     Active Substance: BOSENTAN
     Indication: PULMONARY ARTERIAL HYPERTENSION
     Dosage: 16 MG, BID
     Route: 048
     Dates: start: 20180201

REACTIONS (5)
  - Surgery [Unknown]
  - Malaise [Recovered/Resolved]
  - Procedural complication [Not Recovered/Not Resolved]
  - Oxygen saturation abnormal [Not Recovered/Not Resolved]
  - Influenza [Not Recovered/Not Resolved]

NARRATIVE: CASE EVENT DATE: 20180330
